FAERS Safety Report 13781128 (Version 1)
Quarter: 2017Q3

REPORT INFORMATION
  Report Type: Spontaneous
  Country: US (occurrence: US)
  Receive Date: 20170723
  Receipt Date: 20170723
  Transmission Date: 20171127
  Serious: Yes (Disabling)
  Sender: FDA-Public Use
  Company Number: None

PATIENT
  Age: 48 Year
  Sex: Male
  Weight: 67.5 kg

DRUGS (2)
  1. METFORMIN [Concomitant]
     Active Substance: METFORMIN HYDROCHLORIDE
  2. KLONOPIN [Suspect]
     Active Substance: CLONAZEPAM
     Indication: INSOMNIA
     Dosage: ?          OTHER STRENGTH:MG;?
     Route: 048
     Dates: start: 20130201, end: 20150729

REACTIONS (24)
  - Panic attack [None]
  - Paranoia [None]
  - Head discomfort [None]
  - Dizziness [None]
  - Derealisation [None]
  - Withdrawal syndrome [None]
  - Hot flush [None]
  - Suicidal ideation [None]
  - Stress [None]
  - Muscle spasms [None]
  - Agoraphobia [None]
  - Confusional state [None]
  - Headache [None]
  - Paraesthesia [None]
  - Anxiety [None]
  - Hyperhidrosis [None]
  - Psychotic disorder [None]
  - Palpitations [None]
  - Decreased appetite [None]
  - Insomnia [None]
  - Skin burning sensation [None]
  - Nausea [None]
  - Weight decreased [None]
  - Obsessive thoughts [None]

NARRATIVE: CASE EVENT DATE: 20130923
